FAERS Safety Report 10692366 (Version 2)
Quarter: 2015Q1

REPORT INFORMATION
  Report Type: Spontaneous
  Country: US (occurrence: US)
  Receive Date: 20150106
  Receipt Date: 20150106
  Transmission Date: 20150720
  Serious: Yes (Hospitalization, Other)
  Sender: FDA-Public Use
  Company Number: US-ASTELLAS-2014US018212

PATIENT
  Sex: Male

DRUGS (1)
  1. VESICARE [Suspect]
     Active Substance: SOLIFENACIN SUCCINATE
     Indication: PRODUCT USED FOR UNKNOWN INDICATION
     Route: 065
     Dates: start: 201410

REACTIONS (7)
  - Hypersensitivity [Unknown]
  - Eye pruritus [Unknown]
  - Condition aggravated [Unknown]
  - Myocardial infarction [Unknown]
  - Alopecia [Unknown]
  - Pruritus [Unknown]
  - Nocturia [Unknown]
